FAERS Safety Report 8372735-X (Version None)
Quarter: 2012Q2

REPORT INFORMATION
  Report Type: 
  Country: None (occurrence: None)
  Receive Date: 20120521
  Receipt Date: 20120514
  Transmission Date: 20120825
  Serious: Yes (Death)
  Sender: FDA-Public Use
  Company Number: ID-ASTELLAS-2012JP004271

PATIENT
  Age: 57 Year
  Sex: Female

DRUGS (5)
  1. TACROLIMUS [Suspect]
     Dosage: UNK
     Route: 048
  2. SOLU-MEDROL [Concomitant]
     Dosage: 500 MG, UNKNOWN/D
     Route: 065
     Dates: start: 20120101
  3. TACROLIMUS [Suspect]
     Dosage: 4 MG, BID
     Route: 048
     Dates: start: 20090903
  4. CELLCEPT [Concomitant]
     Dosage: 1 DF, BID
     Route: 065
     Dates: start: 20090903
  5. TACROLIMUS [Suspect]
     Indication: RENAL TRANSPLANT
     Dosage: 2 MG, BID
     Route: 048
     Dates: end: 20120101

REACTIONS (1)
  - DEATH [None]
